FAERS Safety Report 19154269 (Version 2)
Quarter: 2021Q2

REPORT INFORMATION
  Report Type: Spontaneous
  Country: US (occurrence: US)
  Receive Date: 20210419
  Receipt Date: 20210604
  Transmission Date: 20210717
  Serious: Yes (Hospitalization)
  Sender: FDA-Public Use
  Company Number: US-GW PHARMA-202104USGW01605

PATIENT

DRUGS (4)
  1. EPIDIOLEX [Suspect]
     Active Substance: CANNABIDIOL
     Indication: EPILEPSY
     Dosage: 10.52 MG/KG/DAY, 90 MILLIGRAM, BID
     Route: 048
     Dates: start: 202007, end: 20210318
  2. EPIDIOLEX [Suspect]
     Active Substance: CANNABIDIOL
     Dosage: WEANING OFF EPIDIOLEX, UNK
     Route: 048
     Dates: start: 2021
  3. EPIDIOLEX [Suspect]
     Active Substance: CANNABIDIOL
     Dosage: 46.78 MG/KG/DAY, 400 MILLIGRAM, BID
     Route: 048
     Dates: start: 20210319, end: 20210408
  4. EPIDIOLEX [Suspect]
     Active Substance: CANNABIDIOL
     Dosage: 40.93 MG/KG/DAY, 700 MILLIGRAM, QD (3ML QAM AND 4 ML QHS)
     Route: 048
     Dates: start: 20210409, end: 2021

REACTIONS (6)
  - Epilepsy [Recovered/Resolved]
  - Prescribed overdose [Unknown]
  - Hepatic enzyme increased [Unknown]
  - Epilepsy [Recovered/Resolved]
  - Epilepsy [Recovered/Resolved]
  - Vomiting [Not Recovered/Not Resolved]

NARRATIVE: CASE EVENT DATE: 202103
